FAERS Safety Report 14667903 (Version 3)
Quarter: 2018Q2

REPORT INFORMATION
  Report Type: Spontaneous
  Country: DE (occurrence: DE)
  Receive Date: 20180322
  Receipt Date: 20180418
  Transmission Date: 20180711
  Serious: Yes (Death)
  Sender: FDA-Public Use
  Company Number: PHHY2018DE050311

PATIENT
  Sex: Male
  Weight: 86 kg

DRUGS (5)
  1. ENTRESTO [Suspect]
     Active Substance: SACUBITRIL\VALSARTAN
     Indication: CONGESTIVE CARDIOMYOPATHY
     Dosage: 1 DF, BID
     Route: 065
     Dates: start: 20180301
  2. EPLERENONE. [Concomitant]
     Active Substance: EPLERENONE
     Indication: CONGESTIVE CARDIOMYOPATHY
     Dosage: 25 OT, UNK
     Route: 048
  3. ENTRESTO [Suspect]
     Active Substance: SACUBITRIL\VALSARTAN
     Indication: EJECTION FRACTION DECREASED
  4. BISOPROLOL [Concomitant]
     Active Substance: BISOPROLOL
     Indication: CONGESTIVE CARDIOMYOPATHY
     Dosage: 10 OT, UNK
     Route: 048
  5. INNOHEP [Concomitant]
     Active Substance: TINZAPARIN SODIUM
     Indication: CARDIAC VENTRICULAR THROMBOSIS
     Dosage: 0.7 ML, (20000 IE/ML)UNK
     Route: 058
     Dates: start: 20180228

REACTIONS (4)
  - Congestive cardiomyopathy [Fatal]
  - Product use in unapproved indication [Unknown]
  - Pulseless electrical activity [Fatal]
  - Sudden cardiac death [Fatal]

NARRATIVE: CASE EVENT DATE: 20180301
